FAERS Safety Report 5853010-1 (Version None)
Quarter: 2008Q3

REPORT INFORMATION
  Report Type: 
  Country: None (occurrence: None)
  Receive Date: 20080821
  Receipt Date: 20080808
  Transmission Date: 20090109
  Serious: Yes (Hospitalization)
  Sender: FDA-Public Use
  Company Number: DE-GENENTECH-266465

PATIENT
  Sex: Female

DRUGS (2)
  1. AVASTIN [Suspect]
     Indication: BREAST CANCER METASTATIC
     Dosage: 750 MG, QD
     Route: 065
     Dates: start: 20080327, end: 20080710
  2. TAXOL [Suspect]
     Indication: BREAST CANCER METASTATIC
     Dosage: 160 MG, QD
     Route: 065
     Dates: start: 20080327, end: 20080710

REACTIONS (5)
  - MUCOSAL INFLAMMATION [None]
  - PHOTOSENSITIVITY REACTION [None]
  - SKIN DISORDER [None]
  - SKIN FISSURES [None]
  - TELANGIECTASIA [None]
